FAERS Safety Report 15994788 (Version 2)
Quarter: 2020Q2

REPORT INFORMATION
  Report Type: Report from Study
  Country: BW (occurrence: BW)
  Receive Date: 20190222
  Receipt Date: 20200429
  Transmission Date: 20200713
  Serious: Yes (Death, Congenital Anomaly, Other)
  Sender: FDA-Public Use
  Company Number: BW-HETERO CORPORATE-HET2019BW00182

PATIENT
  Age: 0 Day

DRUGS (4)
  1. ABACAVIR. [Suspect]
     Active Substance: ABACAVIR
     Indication: HIV INFECTION
     Dosage: UNK
     Route: 064
     Dates: end: 20181001
  2. DOLUTEGRAVIR [Suspect]
     Active Substance: DOLUTEGRAVIR
     Indication: HIV INFECTION
     Dosage: UNK
     Route: 064
     Dates: end: 20181001
  3. EFAVIRENZ. [Suspect]
     Active Substance: EFAVIRENZ
     Indication: HIV INFECTION
     Dosage: UNK
     Route: 064
     Dates: end: 20181001
  4. LAMIVUDINE. [Suspect]
     Active Substance: LAMIVUDINE
     Indication: HIV INFECTION
     Dosage: UNK
     Route: 064
     Dates: end: 20181001

REACTIONS (4)
  - Foetal exposure during pregnancy [Unknown]
  - Death [Fatal]
  - Hydrocephalus [Unknown]
  - Meningomyelocele [Unknown]

NARRATIVE: CASE EVENT DATE: 20181001
